FAERS Safety Report 9517096 (Version 1)
Quarter: 2013Q1

REPORT INFORMATION
  Report Type: Spontaneous
  Country: US (occurrence: None)
  Receive Date: 20130305
  Receipt Date: 20130305
  Transmission Date: 20140127
  Serious: Yes (Hospitalization)
  Sender: FDA-Public Use
  Company Number: 163-21880-12113515

PATIENT
  Age: 74 Year
  Sex: Male

DRUGS (9)
  1. REVLIMID (LENALIDOMIDE) [Suspect]
     Indication: PLASMA CELL MYELOMA
     Route: 048
     Dates: start: 20120628
  2. ALBUTEROL SULFATE (SALBUTAMIL SULFATE) [Concomitant]
  3. AREDIA (PAMIDRONATE DISODIUM) [Concomitant]
  4. ASPIRIN (ACETYLSALICYLIC ACID) [Concomitant]
  5. BROVANA (ARFORMOTEROL TARTRATE) [Concomitant]
  6. CYMBALTA (DULOXETINE HYDROCHLORIDE) [Concomitant]
  7. DEXAMETHASONE [Concomitant]
  8. EMLA [Concomitant]
  9. LISINOPRIL [Concomitant]

REACTIONS (1)
  - Myocardial infarction [None]
